FAERS Safety Report 10568984 (Version 10)
Quarter: 2015Q1

REPORT INFORMATION
  Report Type: Report from Study
  Country: JP (occurrence: JP)
  Receive Date: 20141106
  Receipt Date: 20150320
  Transmission Date: 20150720
  Serious: Yes (Death, Life-Threatening, Hospitalization)
  Sender: FDA-Public Use
  Company Number: JP-SA-2014SA142936

PATIENT
  Age: 76 Year
  Sex: Male
  Weight: 37.8 kg

DRUGS (12)
  1. ITOROL [Concomitant]
     Active Substance: ISOSORBIDE MONONITRATE
     Indication: MYOCARDIAL INFARCTION
     Route: 048
     Dates: end: 20141020
  2. LANTUS [Concomitant]
     Active Substance: INSULIN GLARGINE
     Dates: end: 201408
  3. BENZALIN [Concomitant]
     Active Substance: NITRAZEPAM
  4. MAGMITT [Concomitant]
     Active Substance: MAGNESIUM OXIDE
     Dates: end: 20141011
  5. APLEWAY [Suspect]
     Active Substance: TOFOGLIFLOZIN
     Indication: TYPE 2 DIABETES MELLITUS
     Dosage: 20MG
     Route: 048
     Dates: start: 20140528, end: 20141011
  6. GASTER [Concomitant]
     Active Substance: FAMOTIDINE
     Route: 048
     Dates: end: 20141020
  7. LIVALO [Concomitant]
     Active Substance: PITAVASTATIN CALCIUM
     Indication: DIABETES MELLITUS
     Route: 048
     Dates: end: 20141110
  8. LASIX [Suspect]
     Active Substance: FUROSEMIDE
     Indication: CARDIAC FAILURE
     Route: 065
     Dates: start: 20141021
  9. DIURETICS [Concomitant]
     Active Substance: UNSPECIFIED INGREDIENT
  10. WARFARIN [Concomitant]
     Active Substance: WARFARIN
     Indication: MYOCARDIAL INFARCTION
     Route: 048
     Dates: end: 20141018
  11. LASIX [Suspect]
     Active Substance: FUROSEMIDE
     Indication: CARDIAC FAILURE
     Dosage: STRENGTH 20 MG
     Route: 048
     Dates: start: 20140226, end: 20141020
  12. JANUVIA [Concomitant]
     Active Substance: SITAGLIPTIN PHOSPHATE
     Indication: DIABETES MELLITUS
     Route: 048
     Dates: start: 20140226, end: 20141110

REACTIONS (5)
  - Hyperglycaemia [Recovering/Resolving]
  - Acute prerenal failure [Recovered/Resolved]
  - Depressed level of consciousness [Fatal]
  - Eating disorder [Fatal]
  - Pneumonia staphylococcal [Recovered/Resolved]

NARRATIVE: CASE EVENT DATE: 20141009
